FAERS Safety Report 4378368-4 (Version None)
Quarter: 2004Q2

REPORT INFORMATION
  Report Type: 
  Country: None (occurrence: None)
  Receive Date: 20040616
  Receipt Date: 20040521
  Transmission Date: 20050107
  Serious: Yes (Hospitalization)
  Sender: FDA-Public Use
  Company Number: PHBS2004JP06913

PATIENT
  Age: 9 Year
  Sex: Female
  Weight: 25 kg

DRUGS (1)
  1. DICLOFENAC SODIUM [Suspect]
     Indication: PYREXIA

REACTIONS (17)
  - BETA 2 MICROGLOBULIN INCREASED [None]
  - BETA-N-ACETYL-D-GLUCOSAMINIDASE INCREASED [None]
  - BLOOD CREATININE INCREASED [None]
  - BLOOD SODIUM INCREASED [None]
  - BLOOD UREA INCREASED [None]
  - CULTURE URINE POSITIVE [None]
  - FLANK PAIN [None]
  - HAEMATURIA [None]
  - LEUKOCYTURIA [None]
  - PROTEIN URINE PRESENT [None]
  - PYELONEPHRITIS [None]
  - PYREXIA [None]
  - RENAL FAILURE ACUTE [None]
  - SALMONELLOSIS [None]
  - SYSTEMIC INFLAMMATORY RESPONSE SYNDROME [None]
  - URETERIC STENOSIS [None]
  - WHITE BLOOD CELL COUNT INCREASED [None]
